FAERS Safety Report 6615960-8 (Version None)
Quarter: 2010Q1

REPORT INFORMATION
  Report Type: 
  Country: None (occurrence: None)
  Receive Date: 20100305
  Receipt Date: 20100302
  Transmission Date: 20100710
  Serious: Yes (Disabling)
  Sender: FDA-Public Use
  Company Number: A0847562A

PATIENT
  Age: 35 Year
  Sex: Female

DRUGS (4)
  1. LAMICTAL [Suspect]
     Indication: BIPOLAR DISORDER
     Dosage: 25MG PER DAY
     Route: 048
     Dates: start: 20100223, end: 20100225
  2. INVEGA [Concomitant]
  3. AMBIEN CR [Concomitant]
  4. GLUCOPHAGE [Concomitant]

REACTIONS (10)
  - DYSKINESIA [None]
  - DYSPHONIA [None]
  - FEAR [None]
  - INCOHERENT [None]
  - MOVEMENT DISORDER [None]
  - MUSCLE TWITCHING [None]
  - MUSCULOSKELETAL STIFFNESS [None]
  - PARANOIA [None]
  - SPEECH DISORDER [None]
  - SWELLING [None]
